FAERS Safety Report 25600060 (Version 1)
Quarter: 2025Q3

REPORT INFORMATION
  Report Type: Report from Study
  Country: CA (occurrence: CA)
  Receive Date: 20250724
  Receipt Date: 20250724
  Transmission Date: 20251021
  Serious: Yes (Other)
  Sender: ABBVIE
  Company Number: CA-ABBVIE-6381103

PATIENT
  Sex: Female

DRUGS (1)
  1. HUMIRA [Suspect]
     Active Substance: ADALIMUMAB
     Indication: Uveitis
     Dosage: LATEST DOSE TOOK ON 07 JUL 2025
     Route: 058

REACTIONS (3)
  - Abortion spontaneous [Unknown]
  - Endometriosis [Unknown]
  - Maternal exposure during pregnancy [Unknown]
